FAERS Safety Report 4273881-2 (Version None)
Quarter: 2004Q1

REPORT INFORMATION
  Report Type: 
  Country: None (occurrence: None)
  Receive Date: 20040115
  Receipt Date: 20031229
  Transmission Date: 20041129
  Serious: Yes (Other)
  Sender: FDA-Public Use
  Company Number: USA031255434

PATIENT
  Age: 59 Year
  Sex: Male
  Weight: 105 kg

DRUGS (2)
  1. HUMALOG [Suspect]
     Dosage: 94U/DAY
     Dates: start: 20020101
  2. HUMALOG [Suspect]
     Dates: start: 20020101

REACTIONS (8)
  - BLINDNESS [None]
  - BLOOD GLUCOSE INCREASED [None]
  - DRY SKIN [None]
  - EYE HAEMORRHAGE [None]
  - HYPERKERATOSIS [None]
  - SKIN BLEEDING [None]
  - SKIN DISORDER [None]
  - VISUAL ACUITY REDUCED [None]
